FAERS Safety Report 23333389 (Version 1)
Quarter: 2023Q4

REPORT INFORMATION
  Report Type: Spontaneous
  Country: US (occurrence: US)
  Receive Date: 20231222
  Receipt Date: 20231222
  Transmission Date: 20240109
  Serious: No
  Sender: FDA-Public Use
  Company Number: US-CTI BIOPHARMA-2023US04181

PATIENT

DRUGS (36)
  1. VONJO [Suspect]
     Active Substance: PACRITINIB
     Indication: Myelodysplastic syndrome
     Dosage: 100 MG, BID
     Route: 048
     Dates: start: 20230609
  2. ACETAMINOPHEN [Concomitant]
     Active Substance: ACETAMINOPHEN
  3. ALPRAZOLAM [Concomitant]
     Active Substance: ALPRAZOLAM
  4. ASPIRIN [Concomitant]
     Active Substance: ASPIRIN
  5. ATORVASTATIN [Concomitant]
     Active Substance: ATORVASTATIN
  6. AZITHROMYCIN [Concomitant]
     Active Substance: AZITHROMYCIN
  7. BENADRYL [Concomitant]
     Active Substance: DIPHENHYDRAMINE HYDROCHLORIDE
  8. CALCIUM CARBONATE\CHOLECALCIFEROL [Concomitant]
     Active Substance: CALCIUM CARBONATE\CHOLECALCIFEROL
  9. CYCLOBENZAPRINE [Concomitant]
     Active Substance: CYCLOBENZAPRINE
  10. DEFERASIROX [Concomitant]
     Active Substance: DEFERASIROX
  11. DESLORATADINE [Concomitant]
     Active Substance: DESLORATADINE
  12. DIAZEPAM [Concomitant]
     Active Substance: DIAZEPAM
  13. FISH OIL [Concomitant]
     Active Substance: FISH OIL
  14. FLUTICASONE [Concomitant]
     Active Substance: FLUTICASONE
  15. MECLIZINE [Concomitant]
     Active Substance: MECLIZINE HYDROCHLORIDE
  16. FOLIC ACID [Concomitant]
     Active Substance: FOLIC ACID
  17. VITAMIN E [Concomitant]
     Active Substance: .ALPHA.-TOCOPHEROL
  18. LORAZEPAM [Concomitant]
     Active Substance: LORAZEPAM
  19. LOSARTAN [Concomitant]
     Active Substance: LOSARTAN
  20. MAGNESIUM [Concomitant]
     Active Substance: MAGNESIUM
  21. MELATONIN [Concomitant]
     Active Substance: MELATONIN
  22. METFORMIN [Concomitant]
     Active Substance: METFORMIN HYDROCHLORIDE
  23. VITAMINS NOS [Concomitant]
     Active Substance: VITAMINS
  24. OXYCODONE [Concomitant]
     Active Substance: OXYCODONE
  25. PANTOPRAZOLE [Concomitant]
     Active Substance: PANTOPRAZOLE
  26. PRAVASTATIN [Concomitant]
     Active Substance: PRAVASTATIN
  27. PREVAGEN [APOAEQUORIN] [Concomitant]
  28. REBLOZYL [Concomitant]
     Active Substance: LUSPATERCEPT-AAMT
  29. REFRESH PLUS [Concomitant]
     Active Substance: CARBOXYMETHYLCELLULOSE SODIUM
  30. THERAWORX RELIEF [Concomitant]
  31. TYLENOL [Concomitant]
     Active Substance: ACETAMINOPHEN
  32. VENCLEXTA [Concomitant]
     Active Substance: VENETOCLAX
  33. VITAMIN B [Concomitant]
     Active Substance: VITAMIN B
  34. VITAMIN D3 [Concomitant]
     Active Substance: CHOLECALCIFEROL
  35. DICLOFENAC [Concomitant]
     Active Substance: DICLOFENAC
  36. DIPHENHYDRAMINE [Concomitant]
     Active Substance: DIPHENHYDRAMINE

REACTIONS (2)
  - Drug ineffective [Not Recovered/Not Resolved]
  - Off label use [Unknown]
